FAERS Safety Report 23044118 (Version 3)
Quarter: 2023Q4

REPORT INFORMATION
  Report Type: Spontaneous
  Country: DE (occurrence: DE)
  Receive Date: 20231009
  Receipt Date: 20231013
  Transmission Date: 20240110
  Serious: Yes (Life-Threatening, Hospitalization, Other)
  Sender: FDA-Public Use
  Company Number: None

PATIENT
  Age: 35 Year
  Sex: Female
  Weight: 69 kg

DRUGS (10)
  1. PREDNISOLONE [Interacting]
     Active Substance: PREDNISOLONE
     Indication: Relapsing multiple sclerosis
     Dosage: 400 MILLIGRAM, PER DAY, HIGH-DOSE STEROIDS
     Route: 048
     Dates: start: 20211027, end: 20211029
  2. PREDNISOLONE [Interacting]
     Active Substance: PREDNISOLONE
     Indication: Multiple sclerosis relapse
  3. CLADRIBINE [Interacting]
     Active Substance: CLADRIBINE
     Indication: Relapsing multiple sclerosis
     Dosage: 60 MILLIGRAM, CYCLICAL, FIRST OC TREATMENT CYCLE- FIRST AND SECOND COURSE TOTAL DOSAGE: 60 MG/0.875
     Route: 048
     Dates: start: 20211004, end: 2021
  4. CLADRIBINE [Interacting]
     Active Substance: CLADRIBINE
     Dosage: 60 MILLIGRAM, CYCLICAL, FIRST OC TREATMENT CYCLE- FIRST AND SECOND COURSE TOTAL DOSAGE: 60 MG/0.875
     Route: 048
     Dates: start: 20211108, end: 2021
  5. CLADRIBINE [Interacting]
     Active Substance: CLADRIBINE
     Dosage: 10 MILLIGRAM, CYCLICAL; FIRST COURSE OF SECOND TREATMENT CYCLE
     Route: 048
     Dates: start: 20220901
  6. CLADRIBINE [Interacting]
     Active Substance: CLADRIBINE
     Dosage: 0.729 MILLIGRAM/KILOGRAM, CYCLICAL; TOTAL DOSAGE: 50 MG
     Route: 048
     Dates: start: 20220919
  7. CLADRIBINE [Interacting]
     Active Substance: CLADRIBINE
     Dosage: 0.875 MILLIGRAM/KILOGRAM, CYCLICAL; FINAL COURSE OF SECOND TREATMENT CYCLE; TOTAL DOSAGE: 60 MG
     Route: 048
     Dates: start: 20221017
  8. PEGINTERFERON BETA-1A [Suspect]
     Active Substance: PEGINTERFERON BETA-1A
     Indication: Relapsing multiple sclerosis
     Dosage: UNK
     Route: 065
     Dates: end: 202108
  9. DIETHYLSTILBESTROL [Suspect]
     Active Substance: DIETHYLSTILBESTROL
     Indication: Relapsing multiple sclerosis
     Dosage: LOW-DOSE
     Route: 065
  10. DIETHYLSTILBESTROL [Suspect]
     Active Substance: DIETHYLSTILBESTROL
     Indication: Contraception

REACTIONS (5)
  - Hepatocellular injury [Recovered/Resolved]
  - Drug-induced liver injury [Recovered/Resolved]
  - Drug interaction [Recovered/Resolved]
  - Lymphopenia [Recovered/Resolved]
  - Coagulopathy [Recovered/Resolved]

NARRATIVE: CASE EVENT DATE: 20210101
